FAERS Safety Report 5689080-3 (Version None)
Quarter: 2008Q1

REPORT INFORMATION
  Report Type: 
  Country: None (occurrence: None)
  Receive Date: 20080331
  Receipt Date: 20070503
  Transmission Date: 20080703
  Serious: Yes (Death, Hospitalization)
  Sender: FDA-Public Use
  Company Number: NL-ROCHE-496141

PATIENT
  Age: 72 Year
  Sex: Female

DRUGS (2)
  1. XELODA [Suspect]
     Route: 048
  2. OXALIPLATIN [Suspect]
     Route: 048

REACTIONS (2)
  - DEATH [None]
  - DIARRHOEA [None]
